FAERS Safety Report 9757226 (Version 2)
Quarter: 2013Q4

REPORT INFORMATION
  Report Type: Spontaneous
  Country: CH (occurrence: CH)
  Receive Date: 20131213
  Receipt Date: 20131213
  Transmission Date: 20140711
  Serious: Yes (Hospitalization, Other)
  Sender: FDA-Public Use
  Company Number: CH-ABBVIE-11P-151-0716901-00

PATIENT
  Age: 51 Year
  Sex: Male

DRUGS (15)
  1. RITONAVIR SOFT GELATIN CAPSULES [Suspect]
     Indication: PRODUCT USED FOR UNKNOWN INDICATION
     Route: 048
  2. DERMOVATE [Interacting]
     Indication: ERYTHEMA
     Dosage: WHOLE BODY APPLICATION
     Route: 061
     Dates: start: 20110217, end: 20110307
  3. SERETIDE [Interacting]
     Indication: ASTHMA
     Dosage: DOSE REDUCED
     Route: 055
     Dates: start: 201011, end: 201103
  4. SERETIDE [Interacting]
     Dosage: DOSE NOT CHANGED
     Route: 055
     Dates: start: 201103
  5. TRIAMCORT [Interacting]
     Indication: EPICONDYLITIS
     Dosage: 40 MG IN EACH ELBOW ONCE
     Route: 014
     Dates: start: 20101105, end: 20101105
  6. INTELENCE [Concomitant]
     Indication: PRODUCT USED FOR UNKNOWN INDICATION
  7. REYATAZ [Concomitant]
     Indication: PRODUCT USED FOR UNKNOWN INDICATION
  8. VIDEX [Concomitant]
     Indication: PRODUCT USED FOR UNKNOWN INDICATION
  9. NORVIR [Concomitant]
     Indication: PRODUCT USED FOR UNKNOWN INDICATION
  10. BACTRIM FORTE [Concomitant]
     Indication: PRODUCT USED FOR UNKNOWN INDICATION
  11. ARIXTRA [Concomitant]
     Indication: PRODUCT USED FOR UNKNOWN INDICATION
     Route: 058
  12. VALTREX [Concomitant]
     Indication: PRODUCT USED FOR UNKNOWN INDICATION
  13. FOLIC ACID [Concomitant]
     Indication: PRODUCT USED FOR UNKNOWN INDICATION
  14. VITARUBIN [Concomitant]
     Indication: PRODUCT USED FOR UNKNOWN INDICATION
  15. SINTROM [Concomitant]
     Dosage: INR DEPENDANT
     Dates: start: 201103

REACTIONS (8)
  - Cushing^s syndrome [Recovered/Resolved]
  - Abdominal distension [Recovered/Resolved]
  - Erythema [Recovered/Resolved]
  - Dyspnoea [Recovered/Resolved]
  - Asthma [Recovered/Resolved]
  - Pulmonary embolism [Recovered/Resolved]
  - Epicondylitis [Recovered/Resolved]
  - Drug interaction [Recovered/Resolved]
